FAERS Safety Report 8535992-2 (Version None)
Quarter: 2012Q3

REPORT INFORMATION
  Report Type: 
  Country: None (occurrence: None)
  Receive Date: 20120725
  Receipt Date: 20120723
  Transmission Date: 20120928
  Serious: Yes (Death)
  Sender: FDA-Public Use
  Company Number: PHHY2012CA043851

PATIENT
  Sex: Female

DRUGS (3)
  1. ZOMETA [Suspect]
     Indication: LUNG CANCER METASTATIC
     Dosage: 4 MG, TIW
     Route: 042
     Dates: start: 20120511, end: 20120629
  2. FOLIC ACID [Concomitant]
  3. CHEMOTHERAPEUTICS [Concomitant]

REACTIONS (3)
  - DEATH [None]
  - PAIN [None]
  - FATIGUE [None]
